FAERS Safety Report 8543994-5 (Version None)
Quarter: 2012Q3

REPORT INFORMATION
  Report Type: 
  Country: None (occurrence: None)
  Receive Date: 20120727
  Receipt Date: 20120723
  Transmission Date: 20120928
  Serious: Yes (Hospitalization, Other)
  Sender: FDA-Public Use
  Company Number: US-BAYER-2012-028071

PATIENT
  Age: 21 Year
  Sex: Female
  Weight: 108.84 kg

DRUGS (12)
  1. NATALCARE [Concomitant]
     Dosage: TWO DAILY
     Route: 048
  2. LORTAB [Concomitant]
  3. YAZ [Suspect]
     Indication: CONTRACEPTION
     Dosage: UNK
     Dates: start: 20030801, end: 20031101
  4. MOTRIN [Concomitant]
  5. YAZ [Suspect]
     Indication: MENSTRUAL CYCLE MANAGEMENT
  6. YASMIN [Suspect]
     Indication: CONTRACEPTION
     Dosage: UNK
     Dates: start: 20030801, end: 20031101
  7. PROCARDIA [Concomitant]
  8. OXYCODONE HCL [Concomitant]
     Indication: ANALGESIC THERAPY
     Dosage: 5MG-500MG
     Route: 048
     Dates: start: 20041001
  9. TYLOX [Concomitant]
     Dosage: UNK
     Route: 048
     Dates: start: 20041003
  10. PERCOCET [Concomitant]
  11. IBUPROFEN [Concomitant]
     Dosage: 800 MG, UNK
     Route: 048
     Dates: start: 20041001
  12. YASMIN [Suspect]
     Indication: MENSTRUAL CYCLE MANAGEMENT

REACTIONS (7)
  - PREGNANCY ON ORAL CONTRACEPTIVE [None]
  - PREMATURE BABY [None]
  - PULMONARY EMBOLISM [None]
  - INJURY [None]
  - SEPTIC EMBOLUS [None]
  - EMOTIONAL DISTRESS [None]
  - PAIN [None]
